FAERS Safety Report 21580910 (Version 1)
Quarter: 2022Q4

REPORT INFORMATION
  Report Type: Spontaneous
  Country: CN (occurrence: CN)
  Receive Date: 20221111
  Receipt Date: 20221111
  Transmission Date: 20230112
  Serious: Yes (Death)
  Sender: FDA-Public Use
  Company Number: CN-009507513-2211CHN001329

PATIENT
  Age: 53 Year
  Sex: Female

DRUGS (4)
  1. CASPOFUNGIN ACETATE [Suspect]
     Active Substance: CASPOFUNGIN ACETATE
     Indication: Disseminated aspergillosis
     Dosage: UNK; FOR 1 MONTH (ALSO REPORTED AS FOR MORE THAN 1 YEAR)
     Dates: start: 202007
  2. VORICONAZOLE [Suspect]
     Active Substance: VORICONAZOLE
     Indication: Bronchopulmonary aspergillosis
     Dosage: MORE THAN 1 YEAR
     Route: 048
     Dates: start: 2018
  3. VORICONAZOLE [Suspect]
     Active Substance: VORICONAZOLE
     Indication: Disseminated aspergillosis
  4. AMPHOTERICIN B [Suspect]
     Active Substance: AMPHOTERICIN B
     Indication: Disseminated aspergillosis
     Dosage: UNK; FOR MORE THAN 1 YEAR

REACTIONS (1)
  - Drug ineffective [Fatal]
